FAERS Safety Report 9692729 (Version 1)
Quarter: 2013Q4

REPORT INFORMATION
  Report Type: Spontaneous
  Country: US (occurrence: US)
  Receive Date: 20131118
  Receipt Date: 20131118
  Transmission Date: 20140711
  Serious: No
  Sender: FDA-Public Use
  Company Number: US-JNJFOC-20131104202

PATIENT
  Sex: Female

DRUGS (1)
  1. INVEGA [Suspect]
     Indication: MAJOR DEPRESSION
     Route: 048
     Dates: start: 201310, end: 201311

REACTIONS (1)
  - Oedema peripheral [Unknown]
